FAERS Safety Report 6771965-8 (Version None)
Quarter: 2010Q2

REPORT INFORMATION
  Report Type: 
  Country: None (occurrence: None)
  Receive Date: 20100616
  Receipt Date: 20090825
  Transmission Date: 20101027
  Serious: No
  Sender: FDA-Public Use
  Company Number: US-ASTRAZENECA-2009SE09928

PATIENT
  Sex: Female

DRUGS (1)
  1. RHINOCORT [Suspect]
     Indication: CHRONIC SINUSITIS
     Route: 045
     Dates: start: 20090825

REACTIONS (1)
  - PRODUCT TASTE ABNORMAL [None]
